FAERS Safety Report 20823836 (Version 1)
Quarter: 2022Q2

REPORT INFORMATION
  Report Type: Spontaneous
  Country: US (occurrence: US)
  Receive Date: 20220513
  Receipt Date: 20220513
  Transmission Date: 20220720
  Serious: No
  Sender: FDA-Public Use
  Company Number: US-ORGANON-O2204USA001178

PATIENT
  Age: 30 Year
  Sex: Female

DRUGS (3)
  1. CELESTONE SOLUSPAN [Suspect]
     Active Substance: BETAMETHASONE ACETATE\BETAMETHASONE SODIUM PHOSPHATE
     Dosage: 12 MILLIGRAM, QD, FOR 3 DOSES BEFORE ADMISSION
     Route: 030
  2. CALCIUM CARBONATE [Suspect]
     Active Substance: CALCIUM CARBONATE
     Indication: Gastrooesophageal reflux disease
     Dosage: 8 TO 10 TABLETS, DAILY
  3. INSULIN NOS [Suspect]
     Active Substance: INSULIN NOS
     Dosage: INSULIN PUMP

REACTIONS (1)
  - Maternal exposure during pregnancy [Recovered/Resolved]
